FAERS Safety Report 9534284 (Version 1)
Quarter: 2013Q3

REPORT INFORMATION
  Report Type: Spontaneous
  Country: US (occurrence: US)
  Receive Date: 20130918
  Receipt Date: 20130918
  Transmission Date: 20140515
  Serious: No
  Sender: FDA-Public Use
  Company Number: US-PURDUE-USA-2011-0079801

PATIENT
  Sex: Female

DRUGS (3)
  1. BUTRANS [Suspect]
     Indication: PAIN
     Dosage: UNK
     Route: 062
  2. PERCOCET                           /00446701/ [Concomitant]
     Indication: PAIN
     Dosage: UNK
  3. VICODIN ES [Concomitant]
     Indication: PAIN
     Dosage: UNK

REACTIONS (5)
  - Dehydration [Unknown]
  - Pruritus [Unknown]
  - Vomiting [Unknown]
  - Nausea [Unknown]
  - Diarrhoea [Unknown]
